FAERS Safety Report 25995708 (Version 1)
Quarter: 2025Q4

REPORT INFORMATION
  Report Type: Spontaneous
  Country: US (occurrence: US)
  Receive Date: 20251104
  Receipt Date: 20251104
  Transmission Date: 20260119
  Serious: No
  Sender: MYLAN
  Company Number: US-MYLANLABS-2025M1087232

PATIENT
  Age: 58 Year
  Sex: Male

DRUGS (4)
  1. BREYNA [Suspect]
     Active Substance: BUDESONIDE\FORMOTEROL FUMARATE
     Indication: Lower respiratory tract infection
     Dosage: 320/9 MICROGRAM, BID (2 PUFFS TWICE DAILY)
     Dates: start: 20251008
  2. BREYNA [Suspect]
     Active Substance: BUDESONIDE\FORMOTEROL FUMARATE
     Dosage: 320/9 MICROGRAM, BID (2 PUFFS TWICE DAILY)
     Route: 055
     Dates: start: 20251008
  3. BREYNA [Suspect]
     Active Substance: BUDESONIDE\FORMOTEROL FUMARATE
     Dosage: 320/9 MICROGRAM, BID (2 PUFFS TWICE DAILY)
     Route: 055
     Dates: start: 20251008
  4. BREYNA [Suspect]
     Active Substance: BUDESONIDE\FORMOTEROL FUMARATE
     Dosage: 320/9 MICROGRAM, BID (2 PUFFS TWICE DAILY)
     Dates: start: 20251008

REACTIONS (3)
  - Wrong technique in product usage process [Unknown]
  - Off label use [Unknown]
  - Device delivery system issue [Unknown]

NARRATIVE: CASE EVENT DATE: 20251001
